FAERS Safety Report 4673163-0 (Version None)
Quarter: 2005Q2

REPORT INFORMATION
  Report Type: 
  Country: None (occurrence: None)
  Receive Date: 20050523
  Receipt Date: 20050523
  Transmission Date: 20051028
  Serious: Yes (Life-Threatening, Hospitalization, Disabling, Congenital Anomaly, Other)
  Sender: FDA-Public Use
  Company Number: None

PATIENT
  Age: 58 Year
  Sex: Female
  Weight: 32.659 kg

DRUGS (1)
  1. REGLAN [Suspect]

REACTIONS (10)
  - AGGRESSION [None]
  - APHONIA [None]
  - CONSTIPATION [None]
  - HOMICIDAL IDEATION [None]
  - MENTAL DISORDER [None]
  - PARALYSIS [None]
  - PARKINSONISM [None]
  - STARVATION [None]
  - SUICIDAL IDEATION [None]
  - SUICIDE ATTEMPT [None]
